FAERS Safety Report 11383846 (Version 1)
Quarter: 2015Q3

REPORT INFORMATION
  Report Type: Report from Study
  Country: US (occurrence: US)
  Receive Date: 20150814
  Receipt Date: 20150814
  Transmission Date: 20151125
  Serious: Yes (Other)
  Sender: FDA-Public Use
  Company Number: US-BRISTOL-MYERS SQUIBB COMPANY-BMS-2015-051820

PATIENT
  Age: 66 Year
  Sex: Female
  Weight: 60 kg

DRUGS (1)
  1. IPILIMUMAB [Suspect]
     Active Substance: IPILIMUMAB
     Indication: PLASMA CELL MYELOMA
     Dosage: 10 MG/KG, QCYCLE
     Route: 042
     Dates: start: 20140417

REACTIONS (2)
  - Graft versus host disease [Unknown]
  - Scleroderma [Recovering/Resolving]

NARRATIVE: CASE EVENT DATE: 20150615
